FAERS Safety Report 6378756-0 (Version None)
Quarter: 2009Q3

REPORT INFORMATION
  Report Type: 
  Country: None (occurrence: None)
  Receive Date: 20090928
  Receipt Date: 20090918
  Transmission Date: 20100115
  Serious: Yes (Hospitalization)
  Sender: FDA-Public Use
  Company Number: BR-ASTRAZENECA-2009SE14376

PATIENT
  Age: 72 Year
  Sex: Male
  Weight: 75 kg

DRUGS (1)
  1. ZOLADEX [Suspect]
     Indication: PROSTATE CANCER
     Route: 058
     Dates: start: 20070101

REACTIONS (9)
  - DYSPNOEA [None]
  - ERYTHEMA [None]
  - HYPOAESTHESIA [None]
  - KIDNEY SMALL [None]
  - PHARYNGEAL OEDEMA [None]
  - RASH [None]
  - RENAL CYST [None]
  - SWELLING [None]
  - SWELLING FACE [None]
